FAERS Safety Report 18696692 (Version 2)
Quarter: 2021Q1

REPORT INFORMATION
  Report Type: Spontaneous
  Country: JP (occurrence: JP)
  Receive Date: 20210104
  Receipt Date: 20210108
  Transmission Date: 20210419
  Serious: Yes (Other)
  Sender: FDA-Public Use
  Company Number: JP-PFIZER INC-2021000035

PATIENT
  Sex: Male

DRUGS (10)
  1. CELECOX [Suspect]
     Active Substance: CELECOXIB
     Indication: HEADACHE
  2. LANSOPRAZOLE. [Suspect]
     Active Substance: LANSOPRAZOLE
     Dosage: UNK
     Route: 065
  3. BUFFERIN [ACETYLSALICYLIC ACID] [Concomitant]
     Indication: HEADACHE
     Dosage: UNK
     Route: 048
  4. CELECOX [Suspect]
     Active Substance: CELECOXIB
     Indication: PROCTALGIA
  5. CELECOX [Suspect]
     Active Substance: CELECOXIB
     Indication: BACK PAIN
     Dosage: UNK UNK, 2X/DAY (EVERY TIME ONE TABLET, TWICE DAILY, IN THE MORNING AND EVENING
     Route: 048
  6. CELECOX [Suspect]
     Active Substance: CELECOXIB
     Indication: ANAL FISTULA
     Dosage: UNK, 2X/DAY (TWICE DAILY, EVERY TIME TWO TABLETS, IN THE MORNING AND EVENING)
     Route: 048
  7. BIOFERMIN [LACTOMIN] [Suspect]
     Active Substance: DIETARY SUPPLEMENT\PROBIOTICS
     Dosage: UNK
     Route: 065
  8. LOXONIN [Concomitant]
     Active Substance: LOXOPROFEN SODIUM
     Indication: HEADACHE
     Dosage: UNK
     Route: 048
  9. SELBEX [Suspect]
     Active Substance: TEPRENONE
     Dosage: UNK
     Route: 065
  10. LAC?B [Suspect]
     Active Substance: BIFIDOBACTERIUM SPP.
     Dosage: UNK
     Route: 065

REACTIONS (5)
  - Migraine [Unknown]
  - Haemorrhoidal haemorrhage [Unknown]
  - Gastrointestinal pain [Unknown]
  - Proctalgia [Unknown]
  - Anal abscess [Unknown]
